FAERS Safety Report 5851788-4 (Version None)
Quarter: 2008Q3

REPORT INFORMATION
  Report Type: 
  Country: None (occurrence: None)
  Receive Date: 20080811
  Receipt Date: 20080710
  Transmission Date: 20090109
  Serious: Yes (Hospitalization)
  Sender: FDA-Public Use
  Company Number: 200814272US

PATIENT
  Age: 53 Year
  Sex: Male

DRUGS (6)
  1. APIDRA [Suspect]
     Indication: TYPE 1 DIABETES MELLITUS
     Dosage: 50 U ONCE SC
     Route: 058
     Dates: start: 20080702, end: 20080702
  2. APIDRA [Suspect]
     Indication: TYPE 1 DIABETES MELLITUS
     Dosage: AC SC
     Route: 058
  3. INSULIN GLULISINE (LANTUS) [Suspect]
     Indication: TYPE 1 DIABETES MELLITUS
     Dosage: 50 U QD SC
     Route: 058
  4. ANTI REJECTION MEDS [Concomitant]
  5. ANTIHYPERTENSIVES NOS [Concomitant]
  6. CHOLESTEROL MEDS [Concomitant]

REACTIONS (2)
  - HYPOGLYCAEMIC UNCONSCIOUSNESS [None]
  - WRONG DRUG ADMINISTERED [None]
